FAERS Safety Report 23929640 (Version 1)
Quarter: 2024Q2

REPORT INFORMATION
  Report Type: Spontaneous
  Country: US (occurrence: US)
  Receive Date: 20240601
  Receipt Date: 20240601
  Transmission Date: 20240715
  Serious: No
  Sender: FDA-Public Use
  Company Number: US-RADIUS HEALTH INC.-2024US001962

PATIENT
  Sex: Female

DRUGS (1)
  1. TYMLOS [Suspect]
     Active Substance: ABALOPARATIDE
     Indication: Osteoporosis
     Dosage: 80 MICROGRAM, QD
     Route: 058

REACTIONS (8)
  - Restlessness [Unknown]
  - Initial insomnia [Unknown]
  - Chest discomfort [Unknown]
  - Dyspepsia [Unknown]
  - Insomnia [Unknown]
  - Heart rate increased [Unknown]
  - Pain [Unknown]
  - Pain in extremity [Unknown]
